FAERS Safety Report 5195995-5 (Version None)
Quarter: 2006Q4

REPORT INFORMATION
  Report Type: 
  Country: None (occurrence: None)
  Receive Date: 20061227
  Receipt Date: 20061227
  Transmission Date: 20070319
  Serious: No
  Sender: FDA-Public Use
  Company Number: None

PATIENT
  Sex: Male
  Weight: 83.9154 kg

DRUGS (1)
  1. SINGULAIR [Suspect]
     Indication: RHINORRHOEA
     Dosage: 1 TABLET 1 X PER DAY 7-8 DAYS

REACTIONS (2)
  - PAIN IN JAW [None]
  - TOOTHACHE [None]
